FAERS Safety Report 8589133 (Version 3)
Quarter: 2013Q1

REPORT INFORMATION
  Report Type: Spontaneous
  Country: US (occurrence: US)
  Receive Date: 20120531
  Receipt Date: 20130204
  Transmission Date: 20140127
  Serious: Yes (Other)
  Sender: FDA-Public Use
  Company Number: US-ASTRAZENECA-2012SE33104

PATIENT
  Age: 90 Year
  Sex: Male
  Weight: 54 kg

DRUGS (11)
  1. NEXIUM [Suspect]
     Route: 048
  2. TOPROL XL [Suspect]
     Route: 048
  3. CRESTOR [Suspect]
     Route: 048
  4. NORVASC [Concomitant]
     Route: 048
  5. PLAVIX [Concomitant]
     Route: 048
  6. SYNTHROID [Concomitant]
     Route: 048
  7. VITAMIN D3 [Concomitant]
     Route: 048
  8. ACETAMINOPHEN-HYDROCODONE [Concomitant]
     Indication: PAIN
     Dosage: 500/5 MG EVERY 4 HOURS IF NEEDED
     Route: 048
  9. FERROUS SULFATE [Concomitant]
     Route: 048
  10. NITROGLYCERIN [Concomitant]
     Indication: CHEST PAIN
     Dosage: 0.4 MG EVERY FIVE MINUTED IF NEEDED
     Route: 060
  11. PERCOCET [Concomitant]
     Indication: PAIN
     Dosage: 5/325 ONE TABLET EVERY FOUR HOURS AND PRN
     Route: 048

REACTIONS (19)
  - Upper limb fracture [Unknown]
  - Fall [Unknown]
  - Myocardial infarction [Unknown]
  - Hepatic cancer [Unknown]
  - Cholelithiasis [Unknown]
  - Weight decreased [Unknown]
  - Pain [Unknown]
  - Hypertension [Unknown]
  - Coronary artery disease [Unknown]
  - Osteoarthritis [Unknown]
  - Gastrooesophageal reflux disease [Unknown]
  - Gout [Unknown]
  - Iron deficiency anaemia [Unknown]
  - Hypercholesterolaemia [Unknown]
  - Hypothyroidism [Unknown]
  - Decreased appetite [Unknown]
  - Renal impairment [Unknown]
  - Vitamin D deficiency [Unknown]
  - Oedema peripheral [Unknown]
